FAERS Safety Report 16029304 (Version 1)
Quarter: 2019Q2

REPORT INFORMATION
  Report Type: Spontaneous
  Country: US (occurrence: US)
  Receive Date: 20190303
  Receipt Date: 20190303
  Transmission Date: 20190711
  Serious: No
  Sender: FDA-Public Use
  Company Number: None

PATIENT
  Age: 76 Year
  Sex: Female
  Weight: 81 kg

DRUGS (9)
  1. VITAMIN D3 [Concomitant]
     Active Substance: CHOLECALCIFEROL
  2. POTASSIUM [Concomitant]
     Active Substance: POTASSIUM
  3. ALPHA LIPOIC ACID [Concomitant]
     Active Substance: .ALPHA.-LIPOIC ACID
  4. FUROSEMIDE. [Concomitant]
     Active Substance: FUROSEMIDE
  5. ONE-A-DAY NOS [Concomitant]
     Active Substance: MINERALS\VITAMINS
  6. TUMERIC [Concomitant]
     Active Substance: HERBALS\TURMERIC
  7. GINGER ROOT [Concomitant]
     Active Substance: GINGER
  8. LOSARTAN-HCTZ [Suspect]
     Active Substance: HYDROCHLOROTHIAZIDE\LOSARTAN
     Indication: HYPERTENSION
     Dosage: ?          QUANTITY:90 TABLET(S);?
     Route: 048
  9. APPLE CIDER VINEGAR [Concomitant]
     Active Substance: APPLE CIDER VINEGAR

REACTIONS (2)
  - Skin cancer [None]
  - Laryngeal cancer [None]
